FAERS Safety Report 21404894 (Version 1)
Quarter: 2022Q4

REPORT INFORMATION
  Report Type: Spontaneous
  Country: CA (occurrence: CA)
  Receive Date: 20221003
  Receipt Date: 20221003
  Transmission Date: 20230113
  Serious: Yes (Other)
  Sender: FDA-Public Use
  Company Number: CA-CELLTRION INC.-2022CA015862

PATIENT

DRUGS (8)
  1. INFLIXIMAB [Suspect]
     Active Substance: INFLIXIMAB
     Indication: Sarcoidosis
     Dosage: UNK
     Route: 058
     Dates: start: 20220917
  2. VITAMIN D NOS [Concomitant]
     Active Substance: VITAMIN D NOS
  3. ALENDRONATE [Concomitant]
     Active Substance: ALENDRONATE SODIUM
  4. CALCIUM [Concomitant]
     Active Substance: CALCIUM
  5. FOLIC ACID [Concomitant]
     Active Substance: FOLIC ACID
  6. METHOTREXATE [Concomitant]
     Active Substance: METHOTREXATE
  7. TYLENOL [Concomitant]
     Active Substance: ACETAMINOPHEN
     Dosage: UNK, PRN
  8. DILAUDID [Concomitant]
     Active Substance: HYDROMORPHONE HYDROCHLORIDE
     Dosage: UNK, PRN

REACTIONS (2)
  - Sarcoidosis [Unknown]
  - Off label use [Unknown]
